FAERS Safety Report 12197593 (Version 2)
Quarter: 2016Q1

REPORT INFORMATION
  Report Type: Spontaneous
  Country: US (occurrence: US)
  Receive Date: 20160322
  Receipt Date: 20160322
  Transmission Date: 20160526
  Serious: Yes (Hospitalization)
  Sender: FDA-Public Use
  Company Number: US-JNJCP-30000328686

PATIENT
  Sex: Female
  Weight: 73 kg

DRUGS (3)
  1. JOHNSONS PRODUCTS [Suspect]
     Active Substance: UNSPECIFIED INGREDIENT
     Indication: PRODUCT USED FOR UNKNOWN INDICATION
     Route: 061
  2. SHOWER TO SHOWER (BAKING SODA AND CORN STARCH) [Suspect]
     Active Substance: TALC
     Indication: PRODUCT USED FOR UNKNOWN INDICATION
     Dosage: QUARTER SIZED AMOUNT AFTER EVERY SHOWER
     Route: 061
  3. SHOWER TO SHOWER [Concomitant]
     Active Substance: TALC

REACTIONS (1)
  - Ovarian cancer [Recovered/Resolved]

NARRATIVE: CASE EVENT DATE: 2013
